FAERS Safety Report 7929594-6 (Version None)
Quarter: 2011Q4

REPORT INFORMATION
  Report Type: 
  Country: None (occurrence: None)
  Receive Date: 20111108
  Receipt Date: 20110823
  Transmission Date: 20120403
  Serious: Yes (Other)
  Sender: FDA-Public Use
  Company Number: PHHY2011US31394

PATIENT
  Sex: Female

DRUGS (2)
  1. ZOMETA [Suspect]
     Indication: MULTIPLE MYELOMA
     Dosage: INTRAVENOUS, INTRAVENOUS
     Route: 042
     Dates: start: 20080930
  2. ZOMETA [Suspect]
     Indication: MULTIPLE MYELOMA
     Dosage: INTRAVENOUS, INTRAVENOUS
     Route: 042
     Dates: start: 20101203, end: 20110412

REACTIONS (2)
  - OSTEONECROSIS OF JAW [None]
  - TOOTH DISORDER [None]
